FAERS Safety Report 20467297 (Version 2)
Quarter: 2022Q1

REPORT INFORMATION
  Report Type: Spontaneous
  Country: CH (occurrence: CH)
  Receive Date: 20220214
  Receipt Date: 20220329
  Transmission Date: 20220424
  Serious: Yes (Life-Threatening, Other)
  Sender: FDA-Public Use
  Company Number: CH-NOVOPROD-889434

PATIENT
  Age: 74 Year
  Sex: Male
  Weight: 112 kg

DRUGS (14)
  1. RYBELSUS [Interacting]
     Active Substance: SEMAGLUTIDE
     Indication: Blood glucose increased
     Dosage: 7 MG, QD
     Route: 065
     Dates: start: 20220103, end: 20220114
  2. SINTROM [Interacting]
     Active Substance: ACENOCOUMAROL
     Dosage: 2.5 MG
     Route: 048
     Dates: start: 20211130
  3. SINTROM [Interacting]
     Active Substance: ACENOCOUMAROL
     Dosage: 1.6 (CORRECTION WITH 8;6 MG)
     Route: 048
     Dates: start: 20211221
  4. SINTROM [Interacting]
     Active Substance: ACENOCOUMAROL
     Dosage: 2.7
     Route: 048
     Dates: start: 20211223
  5. SINTROM [Interacting]
     Active Substance: ACENOCOUMAROL
     Dosage: 1.2 MG
     Route: 048
     Dates: start: 20220103
  6. SINTROM [Interacting]
     Active Substance: ACENOCOUMAROL
     Indication: Aortic valve replacement
     Dosage: 3- 4 MG
     Route: 048
     Dates: start: 2013
  7. OZEMPIC [Suspect]
     Active Substance: SEMAGLUTIDE
     Indication: Blood glucose increased
     Dosage: 0.25 MG, QW
     Route: 058
     Dates: start: 20211119, end: 20220103
  8. ATORVASTATIN [Concomitant]
     Active Substance: ATORVASTATIN
     Indication: Product used for unknown indication
     Dosage: 40 MG
     Route: 048
  9. DAPAGLIFLOZIN [Concomitant]
     Active Substance: DAPAGLIFLOZIN
     Indication: Product used for unknown indication
     Dosage: 10 MG
     Route: 048
  10. LISINOPRIL [Concomitant]
     Active Substance: LISINOPRIL
     Indication: Product used for unknown indication
     Dosage: 20 MG
     Route: 048
  11. METFORMIN [Concomitant]
     Active Substance: METFORMIN HYDROCHLORIDE
     Indication: Product used for unknown indication
     Dosage: 2000 MG
     Route: 048
  12. TENORMIN [Concomitant]
     Active Substance: ATENOLOL
     Indication: Product used for unknown indication
     Dosage: 50 MG
     Route: 048
  13. TORSEMIDE [Concomitant]
     Active Substance: TORSEMIDE
     Indication: Product used for unknown indication
     Dosage: 20 MG
     Route: 048
  14. CHOLECALCIFEROL [Concomitant]
     Active Substance: CHOLECALCIFEROL
     Indication: Product used for unknown indication
     Dosage: 10 GTT DROPS
     Route: 048

REACTIONS (2)
  - International normalised ratio decreased [Recovered/Resolved]
  - Enzyme induction [Unknown]

NARRATIVE: CASE EVENT DATE: 20211221
